FAERS Safety Report 12641959 (Version 1)
Quarter: 2016Q3

REPORT INFORMATION
  Report Type: Spontaneous
  Country: GB (occurrence: GB)
  Receive Date: 20160810
  Receipt Date: 20160810
  Transmission Date: 20161109
  Serious: Yes (Hospitalization)
  Sender: FDA-Public Use
  Company Number: GB-MYLANLABS-2016M1032316

PATIENT

DRUGS (13)
  1. ADCAL D3 [Concomitant]
     Active Substance: CALCIUM CARBONATE\CHOLECALCIFEROL
  2. SERETIDE [Concomitant]
     Active Substance: FLUTICASONE PROPIONATE\SALMETEROL XINAFOATE
  3. CARBOCISTEINE [Suspect]
     Active Substance: CARBOCYSTEINE
     Indication: INCREASED VISCOSITY OF BRONCHIAL SECRETION
     Dosage: 750 MG, TID
     Route: 048
     Dates: start: 20160718
  4. GAVISCON ADVANCE [Concomitant]
     Active Substance: POTASSIUM BICARBONATE\SODIUM ALGINATE
  5. MORPHINE [Concomitant]
     Active Substance: MORPHINE
  6. LEVOTHYROXINE SODIUM. [Concomitant]
     Active Substance: LEVOTHYROXINE SODIUM
  7. LIDOCAINE. [Concomitant]
     Active Substance: LIDOCAINE
  8. SALBUTAMOL [Concomitant]
     Active Substance: ALBUTEROL
  9. SENNA                              /00142201/ [Concomitant]
     Active Substance: SENNA LEAF
  10. DOXYCYCLINE. [Suspect]
     Active Substance: DOXYCYCLINE
     Indication: INFECTIVE EXACERBATION OF BRONCHIECTASIS
     Dosage: 200 MG, QD
     Route: 048
     Dates: start: 20160719, end: 20160721
  11. LAXIDO                             /06401201/ [Concomitant]
     Active Substance: POLYETHYLENE GLYCOL 3350\POTASSIUM CHLORIDE\SODIUM BICARBONATE\SODIUM CHLORIDE
  12. OMEPRAZOLE. [Concomitant]
     Active Substance: OMEPRAZOLE
  13. PARACETAMOL [Concomitant]
     Active Substance: ACETAMINOPHEN

REACTIONS (3)
  - Nausea [Unknown]
  - Vomiting [Recovering/Resolving]
  - Dehydration [Unknown]

NARRATIVE: CASE EVENT DATE: 20160719
